FAERS Safety Report 23571619 (Version 2)
Quarter: 2024Q1

REPORT INFORMATION
  Report Type: Spontaneous
  Country: TN (occurrence: TN)
  Receive Date: 20240227
  Receipt Date: 20240313
  Transmission Date: 20240410
  Serious: Yes (Death, Hospitalization, Other)
  Sender: FDA-Public Use
  Company Number: TN-SA-SAC20240227000152

PATIENT
  Sex: Male
  Weight: 5.5 kg

DRUGS (2)
  1. MYOZYME [Suspect]
     Active Substance: ALGLUCOSIDASE ALFA
     Dosage: 20 MG/KG, QOW
     Route: 065
     Dates: start: 20231109
  2. CARNITINE [Concomitant]
     Active Substance: CARNITINE
     Dosage: 100 MG/KG, QD

REACTIONS (6)
  - Cardiac failure acute [Fatal]
  - Pneumonia aspiration [Fatal]
  - Cardiac failure [Fatal]
  - Asphyxia [Unknown]
  - Respiratory tract infection viral [Unknown]
  - Pyrexia [Unknown]

NARRATIVE: CASE EVENT DATE: 20240201
